FAERS Safety Report 5987196-5 (Version None)
Quarter: 2008Q4

REPORT INFORMATION
  Report Type: 
  Country: None (occurrence: None)
  Receive Date: 20081209
  Receipt Date: 20081128
  Transmission Date: 20090506
  Serious: Yes (Other)
  Sender: FDA-Public Use
  Company Number: FR-ELI_LILLY_AND_COMPANY-FR200810004385

PATIENT
  Age: 72 Year
  Sex: Male
  Weight: 103 kg

DRUGS (12)
  1. BYETTA [Suspect]
     Indication: TYPE 2 DIABETES MELLITUS
     Dosage: 5 UG, DAILY (1/D)
     Route: 058
     Dates: start: 20080904, end: 20081015
  2. BYETTA [Suspect]
     Dosage: 10 UG, 2/D
     Route: 058
     Dates: start: 20081016, end: 20081020
  3. METFORMIN HCL [Concomitant]
     Indication: TYPE 2 DIABETES MELLITUS
     Dosage: 850 MG, 2/D
     Route: 048
  4. DIAMICRON [Concomitant]
     Indication: TYPE 2 DIABETES MELLITUS
     Dosage: 30 MG, 3/D
     Route: 048
  5. LYRICA [Concomitant]
     Indication: PAIN
     Dosage: 200 MG, DAILY (1/D)
     Route: 048
  6. COZAAR [Concomitant]
     Indication: HYPERTENSION
     Dosage: 50 MG, DAILY (1/D)
     Route: 048
  7. BEFIZAL [Concomitant]
     Indication: HYPERCHOLESTEROLAEMIA
     Dosage: 600 MG, DAILY (1/D)
     Route: 048
  8. HYPERIUM [Concomitant]
     Indication: HYPERTENSION
     Route: 048
  9. DILTIAZEM HCL [Concomitant]
     Indication: HYPERTENSION
     Route: 048
  10. ALLOPURINOL [Concomitant]
     Indication: HYPERURICAEMIA
     Route: 048
  11. DEROXAT [Concomitant]
     Indication: DEPRESSION
     Route: 048
  12. TEMESTA [Concomitant]
     Indication: DEPRESSION
     Route: 048

REACTIONS (6)
  - ASTHENIA [None]
  - GAMMA-GLUTAMYLTRANSFERASE INCREASED [None]
  - LIVER INJURY [None]
  - LUNG INFECTION [None]
  - NAUSEA [None]
  - PANCREATIC ENZYMES INCREASED [None]
